FAERS Safety Report 6424780-9 (Version None)
Quarter: 2009Q4

REPORT INFORMATION
  Report Type: 
  Country: None (occurrence: None)
  Receive Date: 20091029
  Receipt Date: 20081024
  Transmission Date: 20100525
  Serious: Yes (Other)
  Sender: FDA-Public Use
  Company Number: 180800USA

PATIENT
  Sex: Female

DRUGS (3)
  1. PACLITAXEL [Suspect]
  2. DEXAMETHASONE [Concomitant]
  3. DIPHENHYDRAMINE HCL [Concomitant]

REACTIONS (3)
  - FLUSHING [None]
  - PAIN [None]
  - TACHYCARDIA [None]
